FAERS Safety Report 6540819-4 (Version None)
Quarter: 2010Q1

REPORT INFORMATION
  Report Type: 
  Country: None (occurrence: None)
  Receive Date: 20100118
  Receipt Date: 20100106
  Transmission Date: 20100710
  Serious: No
  Sender: FDA-Public Use
  Company Number: US-JNJFOC-20080905243

PATIENT
  Sex: Male
  Weight: 102.97 kg

DRUGS (4)
  1. DURAGESIC-100 [Suspect]
     Indication: HEADACHE
     Route: 062
  2. DURAGESIC-100 [Suspect]
     Route: 062
  3. LORTAB [Concomitant]
     Indication: BREAKTHROUGH PAIN
     Route: 048
  4. UNKNOWN MEDICATION [Concomitant]

REACTIONS (6)
  - DRUG DOSE OMISSION [None]
  - OFF LABEL USE [None]
  - OVERDOSE [None]
  - PRODUCT QUALITY ISSUE [None]
  - WITHDRAWAL SYNDROME [None]
  - WRONG TECHNIQUE IN DRUG USAGE PROCESS [None]
